FAERS Safety Report 4522297-X (Version None)
Quarter: 2004Q4

REPORT INFORMATION
  Report Type: 
  Country: None (occurrence: None)
  Receive Date: 20041207
  Receipt Date: 20041123
  Transmission Date: 20050328
  Serious: Yes (Other)
  Sender: FDA-Public Use
  Company Number: USA041184621

PATIENT
  Sex: Female

DRUGS (6)
  1. CYMBALTA [Suspect]
     Indication: DEPRESSION
     Dosage: 60 MG DAY
  2. KLONOPIN [Concomitant]
  3. BACLOFEN [Concomitant]
  4. PROTONIX [Concomitant]
  5. DROSPIRENONE [Concomitant]
  6. TOPAMX (TOPIRAMATE) [Concomitant]

REACTIONS (3)
  - CONVERSION DISORDER [None]
  - MUSCLE SPASMS [None]
  - TONIC CLONIC MOVEMENTS [None]
